FAERS Safety Report 8388238-2 (Version None)
Quarter: 2012Q2

REPORT INFORMATION
  Report Type: 
  Country: None (occurrence: None)
  Receive Date: 20120525
  Receipt Date: 20120518
  Transmission Date: 20120825
  Serious: Yes (Other)
  Sender: FDA-Public Use
  Company Number: US-US-EMD SERONO, INC.-7112642

PATIENT
  Sex: Female
  Weight: 54 kg

DRUGS (1)
  1. REBIF [Suspect]
     Indication: MULTIPLE SCLEROSIS
     Route: 058
     Dates: start: 20110917

REACTIONS (4)
  - MULTIPLE SCLEROSIS RELAPSE [None]
  - INSOMNIA [None]
  - THROMBOSIS [None]
  - WEIGHT DECREASED [None]
